FAERS Safety Report 4365271-9 (Version None)
Quarter: 2004Q2

REPORT INFORMATION
  Report Type: 
  Country: None (occurrence: None)
  Receive Date: 20040521
  Receipt Date: 20040511
  Transmission Date: 20050107
  Serious: No
  Sender: FDA-Public Use
  Company Number: A01200402202

PATIENT
  Age: 76 Year
  Sex: Female

DRUGS (3)
  1. ZOLPIDEM TARTRATE [Suspect]
     Indication: SLEEP DISORDER
     Dosage: 10 MG ONCE ORAL
     Route: 048
     Dates: start: 20040207, end: 20040207
  2. SYMMETREL [Concomitant]
  3. ROHYPNOL (FLUNITRAZEPAM) [Concomitant]

REACTIONS (2)
  - DELIRIUM [None]
  - MEDICATION ERROR [None]
